FAERS Safety Report 10469653 (Version 1)
Quarter: 2014Q3

REPORT INFORMATION
  Report Type: Spontaneous
  Country: US (occurrence: None)
  Receive Date: 20140904
  Receipt Date: 20140904
  Transmission Date: 20150326
  Serious: No
  Sender: FDA-Public Use
  Company Number: 228725

PATIENT
  Age: 57 Year
  Sex: Female

DRUGS (1)
  1. PICATO [Suspect]
     Active Substance: INGENOL MEBUTATE
     Indication: ACTINIC KERATOSIS
     Dates: start: 20140618

REACTIONS (5)
  - Eye pain [None]
  - Incorrect product storage [None]
  - Application site vesicles [None]
  - Application site erythema [None]
  - Drug administered at inappropriate site [None]

NARRATIVE: CASE EVENT DATE: 20140619
